FAERS Safety Report 4897814-0 (Version None)
Quarter: 2006Q1

REPORT INFORMATION
  Report Type: 
  Country: None (occurrence: None)
  Receive Date: 20060130
  Receipt Date: 20060117
  Transmission Date: 20060701
  Serious: Yes (Death, Hospitalization)
  Sender: FDA-Public Use
  Company Number: 2006BH000767

PATIENT
  Age: 18 Year
  Sex: Female

DRUGS (6)
  1. MEPERIDINE HCL [Suspect]
     Indication: AGITATION
     Dosage: 25 MG; ONCE; IM
     Route: 030
     Dates: start: 19840304
  2. MEPERIDINE HCL [Suspect]
     Indication: CHILLS
     Dosage: 25 MG; ONCE; IM
     Route: 030
     Dates: start: 19840304
  3. PHENELZINE [Concomitant]
  4. PERCODAN [Concomitant]
  5. ERYTHROMYCIN [Concomitant]
  6. CHLORPHENIRAMINE MALEATE [Concomitant]

REACTIONS (9)
  - AGITATION [None]
  - BRONCHOPNEUMONIA [None]
  - CONDITION AGGRAVATED [None]
  - CONFUSIONAL STATE [None]
  - CONTRAINDICATION TO MEDICAL TREATMENT [None]
  - FALL [None]
  - HYPERPYREXIA [None]
  - RESPIRATORY ARREST [None]
  - RESTLESSNESS [None]
